FAERS Safety Report 24118549 (Version 2)
Quarter: 2024Q4

REPORT INFORMATION
  Report Type: Report from Study
  Country: US (occurrence: US)
  Receive Date: 20240722
  Receipt Date: 20241007
  Transmission Date: 20250115
  Serious: Yes (Hospitalization)
  Sender: INSMED
  Company Number: US-INSMED, INC.-2022-02217-US

PATIENT
  Sex: Female

DRUGS (1)
  1. ARIKAYCE [Suspect]
     Active Substance: AMIKACIN
     Indication: Pseudomonas infection
     Dosage: 590 MILLIGRAM, 28 DAYS ON TREATMENT AND 28 DAYS OFF TREATMENT (EVERY OTHER MONTH)
     Route: 055
     Dates: start: 20220808, end: 202408

REACTIONS (10)
  - Hospitalisation [Unknown]
  - Tracheostomy [Unknown]
  - Aphonia [Unknown]
  - Fatigue [Unknown]
  - Dyspnoea [Unknown]
  - Off label use [Unknown]
  - Incorrect dose administered [Unknown]
  - Product dose omission issue [Unknown]
  - Device difficult to use [Unknown]
  - Wrong device used [Unknown]
